FAERS Safety Report 21369631 (Version 1)
Quarter: 2022Q3

REPORT INFORMATION
  Report Type: Spontaneous
  Country: US (occurrence: US)
  Receive Date: 20220923
  Receipt Date: 20220923
  Transmission Date: 20221027
  Serious: No
  Sender: FDA-Public Use
  Company Number: US-JNJFOC-20220857867

PATIENT
  Age: 73 Year
  Sex: Female

DRUGS (1)
  1. RYBREVANT [Suspect]
     Active Substance: AMIVANTAMAB-VMJW
     Indication: Non-small cell lung cancer
     Route: 065
     Dates: start: 202201

REACTIONS (5)
  - Nail infection [Unknown]
  - Skin ulcer [Unknown]
  - Skin erosion [Unknown]
  - Pain [Unknown]
  - Fatigue [Unknown]
